FAERS Safety Report 12286073 (Version 1)
Quarter: 2016Q2

REPORT INFORMATION
  Report Type: Spontaneous
  Country: US (occurrence: None)
  Receive Date: 20160419
  Receipt Date: 20160419
  Transmission Date: 20160815
  Serious: No
  Sender: FDA-Public Use
  Company Number: None

PATIENT
  Age: 12 Year
  Sex: Female

DRUGS (9)
  1. SODIUM CHLORIDE. [Concomitant]
     Active Substance: SODIUM CHLORIDE
  2. ORKAMBI [Suspect]
     Active Substance: IVACAFTOR\LUMACAFTOR
     Indication: CYSTIC FIBROSIS
     Dosage: 200MG/12.5MG BID ORAL
     Route: 048
     Dates: start: 20150910
  3. ALBUTEROL. [Concomitant]
     Active Substance: ALBUTEROL
  4. PROVENTIL [Concomitant]
     Active Substance: ALBUTEROL
  5. VIOKACE [Concomitant]
     Active Substance: PANCRELIPASE AMYLASE\PANCRELIPASE LIPASE\PANCRELIPASE PROTEASE
  6. SINGULAIR [Concomitant]
     Active Substance: MONTELUKAST SODIUM
  7. CYPROTETIDINE [Concomitant]
  8. PULMOZYME [Suspect]
     Active Substance: DORNASE ALFA
     Indication: CYSTIC FIBROSIS
     Dosage: 2.5MG/2.5ML QD INHALATION
     Route: 055
     Dates: start: 20130624
  9. ZENPEP [Concomitant]
     Active Substance: PANCRELIPASE AMYLASE\PANCRELIPASE LIPASE\PANCRELIPASE PROTEASE

REACTIONS (2)
  - Disease complication [None]
  - Cystic fibrosis [None]

NARRATIVE: CASE EVENT DATE: 201604
